FAERS Safety Report 11422093 (Version 1)
Quarter: 2015Q3

REPORT INFORMATION
  Report Type: Spontaneous
  Country: IN (occurrence: IN)
  Receive Date: 20150827
  Receipt Date: 20150827
  Transmission Date: 20151125
  Serious: Yes (Hospitalization)
  Sender: FDA-Public Use
  Company Number: IN-ACCORD-033319

PATIENT
  Age: 83 Year
  Sex: Male

DRUGS (3)
  1. FOLIC ACID. [Concomitant]
     Active Substance: FOLIC ACID
     Dosage: 5 MG FIVE TIMES A WEEK EXCLUDING THE DAY OF METHOTREXATE AND ITS FOLLOWING DAY.?STRENGTH: 5 MG
  2. METHOTREXATE [Suspect]
     Active Substance: METHOTREXATE
     Indication: PSORIASIS
     Dosage: INITIALLY RECEIVED 10 MG TABLET ONCE WEEKLY, THEN STOPPED. (STRENGTH: 10 MG)
  3. AZATHIOPRINE. [Concomitant]
     Active Substance: AZATHIOPRINE
     Route: 048

REACTIONS (10)
  - Intentional product misuse [Unknown]
  - Pallor [Unknown]
  - Toxicity to various agents [Unknown]
  - Pyrexia [Recovered/Resolved]
  - Oedema peripheral [Unknown]
  - Oral mucosa erosion [Unknown]
  - Disorientation [Recovered/Resolved]
  - Psoriasis [Recovered/Resolved]
  - Muscular weakness [Unknown]
  - Glossitis [Unknown]
